FAERS Safety Report 11265150 (Version 1)
Quarter: 2015Q3

REPORT INFORMATION
  Report Type: Spontaneous
  Country: US (occurrence: None)
  Receive Date: 20150710
  Receipt Date: 20150710
  Transmission Date: 20151125
  Serious: No
  Sender: FDA-Public Use
  Company Number: None

PATIENT
  Age: 14 Year
  Sex: Female

DRUGS (2)
  1. EXJADE [Suspect]
     Active Substance: DEFERASIROX
     Indication: ANAEMIA
     Route: 048
     Dates: start: 20150627, end: 20150704
  2. EXJADE [Suspect]
     Active Substance: DEFERASIROX
     Indication: ANAEMIA
     Route: 048
     Dates: start: 20150627, end: 20150704

REACTIONS (2)
  - Urticaria [None]
  - Rash generalised [None]

NARRATIVE: CASE EVENT DATE: 20150708
